FAERS Safety Report 4827976-2 (Version None)
Quarter: 2005Q4

REPORT INFORMATION
  Report Type: 
  Country: None (occurrence: None)
  Receive Date: 20051114
  Receipt Date: 20051114
  Transmission Date: 20060501
  Serious: Yes (Hospitalization)
  Sender: FDA-Public Use
  Company Number: None

PATIENT

DRUGS (1)
  1. IPRATROPIUM BROMIDE [Suspect]
     Dosage: INHALANT
     Route: 055

REACTIONS (2)
  - DYSPNOEA [None]
  - MEDICATION ERROR [None]
